FAERS Safety Report 12647838 (Version 1)
Quarter: 2016Q3

REPORT INFORMATION
  Report Type: Spontaneous
  Country: US (occurrence: None)
  Receive Date: 20160811
  Receipt Date: 20160811
  Transmission Date: 20161109
  Serious: Yes (Hospitalization)
  Sender: FDA-Public Use
  Company Number: None

PATIENT
  Age: 66 Year
  Sex: Male
  Weight: 101 kg

DRUGS (2)
  1. ACETAMINOPHEN/HYDROCODONE [Suspect]
     Active Substance: ACETAMINOPHEN\HYDROCODONE
     Indication: PAIN
     Dosage: 325/5 MG PRN PO
     Route: 048
     Dates: start: 20160712
  2. LISINOPRIL. [Suspect]
     Active Substance: LISINOPRIL
     Indication: HYPERTENSION
     Dates: start: 20140207, end: 20160721

REACTIONS (6)
  - Pruritus [None]
  - Exposure via direct contact [None]
  - Angioedema [None]
  - No reaction on previous exposure to drug [None]
  - Urticaria [None]
  - Bladder neoplasm [None]

NARRATIVE: CASE EVENT DATE: 20160719
